FAERS Safety Report 7125941-6 (Version None)
Quarter: 2010Q4

REPORT INFORMATION
  Report Type: 
  Country: None (occurrence: None)
  Receive Date: 20101129
  Receipt Date: 20101122
  Transmission Date: 20110411
  Serious: Yes (Death, Hospitalization)
  Sender: FDA-Public Use
  Company Number: US-JNJFOC-20101108044

PATIENT
  Sex: Male
  Weight: 99.79 kg

DRUGS (6)
  1. FENTANYL-100 [Suspect]
     Indication: PAIN IN EXTREMITY
     Dosage: NDC 0781-7243-55
     Route: 062
  2. FENTANYL-100 [Suspect]
     Dosage: NDC 0781-7242-55
     Route: 062
  3. FENTANYL-100 [Suspect]
     Indication: KNEE ARTHROPLASTY
     Dosage: NDC 0781-7242-55
     Route: 062
  4. FENTANYL-100 [Suspect]
     Dosage: NDC 0781-7243-55
     Route: 062
  5. FENTANYL CITRATE [Suspect]
     Indication: PRODUCT USED FOR UNKNOWN INDICATION
     Route: 062
  6. MANY OTHER UNSPECIFIED MEDICATIONS [Concomitant]
     Route: 065

REACTIONS (2)
  - MYOCARDIAL INFARCTION [None]
  - RENAL FAILURE [None]
